FAERS Safety Report 5488315-X (Version None)
Quarter: 2007Q4

REPORT INFORMATION
  Report Type: 
  Country: None (occurrence: None)
  Receive Date: 20071017
  Receipt Date: 20071009
  Transmission Date: 20080405
  Serious: Yes (Hospitalization)
  Sender: FDA-Public Use
  Company Number: FR-WYE-H00571307

PATIENT
  Sex: Female

DRUGS (7)
  1. INIPOMP [Suspect]
     Dosage: ^DF^
     Route: 048
     Dates: start: 20070627
  2. JOSIR [Suspect]
     Dosage: 0.4 MG FREQUENCY UNSPECIFIED
     Route: 048
     Dates: start: 20070628, end: 20070702
  3. TRIFLUCAN [Suspect]
     Dosage: ^DF^
     Route: 048
     Dates: start: 20070627, end: 20070628
  4. ISOPTIN [Suspect]
     Dosage: ^DF^
     Route: 048
     Dates: start: 20070629, end: 20070702
  5. PRIMPERAN [Suspect]
     Indication: NAUSEA
     Route: 042
     Dates: start: 20070627, end: 20070630
  6. PRIMPERAN [Suspect]
     Indication: VOMITING
  7. AUGMENTIN '125' [Suspect]
     Route: 042
     Dates: start: 20070627, end: 20070630

REACTIONS (1)
  - HYPOKALAEMIA [None]
